FAERS Safety Report 23217360 (Version 1)
Quarter: 2023Q4

REPORT INFORMATION
  Report Type: Spontaneous
  Country: DE (occurrence: DE)
  Receive Date: 20231122
  Receipt Date: 20231122
  Transmission Date: 20240110
  Serious: Yes (Other)
  Sender: FDA-Public Use
  Company Number: DE-UCBSA-2023055381

PATIENT
  Sex: Male

DRUGS (2)
  1. FINTEPLA [Interacting]
     Active Substance: FENFLURAMINE
     Indication: Seizure
     Dosage: UNK
  2. ZONISAMIDE [Interacting]
     Active Substance: ZONISAMIDE
     Indication: Product used for unknown indication
     Dosage: UNK

REACTIONS (3)
  - Seizure [Unknown]
  - Weight decreased [Unknown]
  - Drug interaction [Unknown]
